FAERS Safety Report 24114713 (Version 1)
Quarter: 2024Q3

REPORT INFORMATION
  Report Type: Spontaneous
  Country: CA (occurrence: CA)
  Receive Date: 20240721
  Receipt Date: 20240721
  Transmission Date: 20241016
  Serious: Yes (Other)
  Sender: MYLAN
  Company Number: CA-MYLANLABS-2024M1066483

PATIENT
  Sex: Female

DRUGS (6)
  1. CELECOXIB [Suspect]
     Active Substance: CELECOXIB
     Indication: Greater trochanteric pain syndrome
     Dosage: 200 MILLIGRAM, BID (2 EVERY 1 DAYS)
     Route: 048
  2. GABAPENTIN [Suspect]
     Active Substance: GABAPENTIN
     Indication: Greater trochanteric pain syndrome
     Dosage: 300 MILLIGRAM, TID (3 EVERY 1 DAYS)
     Route: 048
  3. DICLOFENAC [Suspect]
     Active Substance: DICLOFENAC
     Indication: Greater trochanteric pain syndrome
     Dosage: UNK
     Route: 061
  4. NAPROXEN [Suspect]
     Active Substance: NAPROXEN
     Indication: Greater trochanteric pain syndrome
     Dosage: UNK
     Route: 065
  5. TRAMADOL [Suspect]
     Active Substance: TRAMADOL\TRAMADOL HYDROCHLORIDE
     Indication: Greater trochanteric pain syndrome
     Dosage: UNK
     Route: 065
  6. BUPIVACAINE [Concomitant]
     Active Substance: BUPIVACAINE
     Indication: Product used for unknown indication
     Dosage: UNK
     Route: 065

REACTIONS (1)
  - Drug ineffective [Unknown]
